FAERS Safety Report 4393764-7 (Version None)
Quarter: 2004Q3

REPORT INFORMATION
  Report Type: 
  Country: None (occurrence: None)
  Receive Date: 20040706
  Receipt Date: 20040625
  Transmission Date: 20050211
  Serious: Yes (Life-Threatening)
  Sender: FDA-Public Use
  Company Number: A01200402588

PATIENT
  Age: 74 Year
  Sex: Female

DRUGS (2)
  1. STILNOX - (ZOLPIDEM) - TABLET - 10 MG [Suspect]
     Indication: INSOMNIA
     Dosage: 5 MG ONCE ORAL
     Route: 048
     Dates: start: 20040529, end: 20040529
  2. OXIRACETAM [Concomitant]

REACTIONS (4)
  - BLOOD GLUCOSE INCREASED [None]
  - CEREBRAL INFARCTION [None]
  - COMA [None]
  - HYPOTENSION [None]
